FAERS Safety Report 4674971-2 (Version None)
Quarter: 2005Q2

REPORT INFORMATION
  Report Type: 
  Country: None (occurrence: None)
  Receive Date: 20050525
  Receipt Date: 20050520
  Transmission Date: 20051028
  Serious: Yes (Hospitalization)
  Sender: FDA-Public Use
  Company Number: 213203

PATIENT
  Age: 70 Year
  Sex: Female

DRUGS (1)
  1. AVASTIN [Suspect]
     Indication: RENAL CELL CARCINOMA STAGE UNSPECIFIED
     Dosage: Q2W

REACTIONS (1)
  - GALLBLADDER PERFORATION [None]
